FAERS Safety Report 8477834-X (Version None)
Quarter: 2012Q2

REPORT INFORMATION
  Report Type: 
  Country: None (occurrence: None)
  Receive Date: 20120629
  Receipt Date: 20120622
  Transmission Date: 20120825
  Serious: Yes (Other)
  Sender: FDA-Public Use
  Company Number: BR-PFIZER INC-2012152126

PATIENT
  Age: 76 Year
  Sex: Female
  Weight: 46 kg

DRUGS (9)
  1. ENALAPRIL [Concomitant]
     Indication: BLOOD PRESSURE
     Dosage: 10 MG, 1X/DAY
     Dates: start: 20020101
  2. OMEPRAZOLE [Concomitant]
     Indication: GASTRIC DISORDER
     Dosage: 20 MG, 1X/DAY
     Dates: start: 19970101
  3. SIMVASTATIN [Concomitant]
     Indication: BLOOD CHOLESTEROL
     Dosage: 20 MG, 1X/DAY
     Dates: start: 19970101
  4. LYRICA [Suspect]
     Dosage: STRENGTH 150MG
     Route: 048
     Dates: start: 20120301
  5. LABIRIN [Concomitant]
     Indication: LABYRINTHITIS
     Dosage: ONE UNIT (UNKNOWN DOSAGE), 1X/DAY
     Dates: start: 20020101
  6. LYRICA [Suspect]
     Dosage: STRENGTH 75MG, UNSPECIFIED POSOLOGY
     Route: 048
     Dates: start: 20111001
  7. CLONAZEPAM [Concomitant]
     Indication: NERVOUSNESS
     Dosage: HALF UNIT (UNKNOWN DOSAGE) DAILY
  8. CITALOPRAM [Concomitant]
     Indication: DEPRESSION
     Dosage: 20 MG, 1X/DAY
     Dates: start: 20020101
  9. LEVOTHYROXINE SODIUM [Concomitant]
     Indication: THYROID DISORDER
     Dosage: 50 MG, 1X/DAY
     Dates: start: 20020101

REACTIONS (5)
  - GLAUCOMA [None]
  - BLOOD CHOLESTEROL INCREASED [None]
  - DIABETES MELLITUS [None]
  - DRUG INEFFECTIVE [None]
  - BLOOD PRESSURE ABNORMAL [None]
